FAERS Safety Report 6399459-2 (Version None)
Quarter: 2009Q4

REPORT INFORMATION
  Report Type: 
  Country: None (occurrence: None)
  Receive Date: 20091014
  Receipt Date: 20091002
  Transmission Date: 20100525
  Serious: Yes (Hospitalization)
  Sender: FDA-Public Use
  Company Number: JP-AMGEN-US363568

PATIENT
  Sex: Female
  Weight: 51 kg

DRUGS (10)
  1. ENBREL [Suspect]
     Indication: RHEUMATOID ARTHRITIS
     Dosage: SOLUTION FOR INJECTION; 50 MG 1 X PER 1 WEEK
     Route: 058
     Dates: start: 20050901, end: 20090731
  2. URSO 250 [Concomitant]
     Dosage: DOSE AND FREQUENCY NOT SPECIFIED
     Route: 048
  3. FOLIAMIN [Concomitant]
     Indication: FOLATE DEFICIENCY
     Route: 048
  4. ASPIRIN [Concomitant]
     Indication: ANTIPHOSPHOLIPID SYNDROME
     Route: 048
     Dates: start: 20031001
  5. ALFAROL [Concomitant]
     Indication: OSTEOPOROSIS
     Route: 048
  6. BONALON [Concomitant]
     Indication: OSTEOPOROSIS
     Route: 048
  7. METHOTREXATE [Concomitant]
     Indication: RHEUMATOID ARTHRITIS
     Route: 048
     Dates: start: 20040701
  8. METHOTREXATE [Concomitant]
     Route: 048
     Dates: end: 20090901
  9. PREDONINE [Concomitant]
     Indication: RHEUMATOID ARTHRITIS
     Dosage: 7.5 MG EVERY
     Route: 048
     Dates: start: 20030801
  10. PREDONINE [Concomitant]
     Route: 048

REACTIONS (2)
  - MYELITIS TRANSVERSE [None]
  - OPTIC NEURITIS [None]
